FAERS Safety Report 5363216-6 (Version None)
Quarter: 2007Q2

REPORT INFORMATION
  Report Type: 
  Country: None (occurrence: None)
  Receive Date: 20070620
  Receipt Date: 20070611
  Transmission Date: 20071010
  Serious: Yes (Hospitalization)
  Sender: FDA-Public Use
  Company Number: FR-JNJFOC-20070602758

PATIENT
  Age: 78 Year
  Sex: Female
  Weight: 62 kg

DRUGS (9)
  1. REOPRO [Suspect]
     Dosage: AN UNSPECIFIED INFUSION
     Route: 042
  2. REOPRO [Suspect]
     Indication: DRUG USE FOR UNKNOWN INDICATION
     Dosage: UNSPECIFIED BOLUS
     Route: 042
  3. ASPIRIN [Concomitant]
     Route: 048
  4. ASPIRIN [Concomitant]
     Route: 048
  5. LOVENOX [Concomitant]
     Route: 058
  6. HEPARINE SODIQUE [Concomitant]
     Route: 042
  7. PLAVIX [Concomitant]
     Route: 048
  8. PLAVIX [Concomitant]
     Dosage: 1 TABLET A DAY (DOSE UNSPECIFIED)
     Route: 048
  9. PLAVIX [Concomitant]
     Dosage: LOADING DOSE 8 TABLETS (DOSE UNSPECIFIED)
     Route: 048

REACTIONS (2)
  - AUTOIMMUNE THROMBOCYTOPENIA [None]
  - CARDIAC FAILURE [None]
